FAERS Safety Report 7646881-X (Version None)
Quarter: 2011Q3

REPORT INFORMATION
  Report Type: 
  Country: None (occurrence: None)
  Receive Date: 20110801
  Receipt Date: 20110727
  Transmission Date: 20111222
  Serious: Yes (Hospitalization)
  Sender: FDA-Public Use
  Company Number: CA-SANOFI-AVENTIS-2011SA033002

PATIENT
  Age: 59 Year
  Sex: Male

DRUGS (5)
  1. CITALOPRAM [Concomitant]
  2. WARFARIN SODIUM [Concomitant]
  3. MULTAQ [Interacting]
     Indication: ATRIAL FIBRILLATION
     Route: 048
     Dates: start: 20110113, end: 20110202
  4. TAPAZOLE [Interacting]
     Indication: HYPERTHYROIDISM
     Route: 048
  5. METOPROLOL SUCCINATE [Suspect]
     Route: 048
     Dates: start: 20110113, end: 20110201

REACTIONS (9)
  - URTICARIA [None]
  - BLOOD ALKALINE PHOSPHATASE INCREASED [None]
  - BLOOD THYROID STIMULATING HORMONE DECREASED [None]
  - GASTRITIS [None]
  - HEART RATE INCREASED [None]
  - DRUG INTERACTION [None]
  - ABDOMINAL PAIN [None]
  - HEART RATE ABNORMAL [None]
  - INTERNATIONAL NORMALISED RATIO INCREASED [None]
